FAERS Safety Report 8797746 (Version 1)
Quarter: 2012Q4

REPORT INFORMATION
  Report Type: Report from Study
  Country: HU (occurrence: HU)
  Receive Date: 20120919
  Receipt Date: 20120919
  Transmission Date: 20130627
  Serious: Yes (Hospitalization, Other)
  Sender: FDA-Public Use
  Company Number: HU-ROCHE-1125911

PATIENT
  Sex: Female

DRUGS (4)
  1. XELODA [Suspect]
     Indication: BREAST CANCER
     Dosage: 3+2 days
     Route: 048
     Dates: start: 20091124
  2. XELODA [Suspect]
     Dosage: 3+2 days
     Route: 048
     Dates: start: 20101124
  3. MEGACE [Concomitant]
  4. ANDAXIN [Concomitant]

REACTIONS (3)
  - Diaphragmatic hernia [Unknown]
  - Asthenia [Unknown]
  - Metastases to lung [Unknown]
